FAERS Safety Report 5676977-3 (Version None)
Quarter: 2008Q1

REPORT INFORMATION
  Report Type: 
  Country: None (occurrence: None)
  Receive Date: 20080318
  Receipt Date: 20080303
  Transmission Date: 20080703
  Serious: Yes (Other)
  Sender: FDA-Public Use
  Company Number: 2008S1003744

PATIENT
  Age: 43 Year
  Sex: Female

DRUGS (8)
  1. DOXEPIN DURA (DOXEPIN HYDROCHLORIDE) [Suspect]
     Indication: DRUG USE FOR UNKNOWN INDICATION
     Dosage: 80 MG; ORAL
     Route: 048
  2. IRON (IRON) [Suspect]
     Dosage: 300 MG; ORAL
     Route: 048
  3. HYDROCHLOROTHIAZIDE [Suspect]
     Dosage: 200 MG; ORAL
     Route: 048
  4. IBUPROFEN [Suspect]
     Dosage: 6000 MG; ORAL
     Route: 048
  5. METOPROLOL TARTRATE [Suspect]
     Dosage: 200 MG; ORAL
     Route: 048
  6. ALCOHOL /00002101/ (ETHANOL) [Suspect]
     Dosage: ORAL
     Route: 048
  7. TRAMADOL 100 HEXAL (NO. PREF. NAME) [Suspect]
     Dosage: 400 MG; ORAL
     Route: 048
  8. TRAMADOL 100 STADA (NO PREF. NAME) [Suspect]
     Dosage: 900 MG; ORAL
     Route: 048

REACTIONS (3)
  - BRADYCARDIA [None]
  - INTENTIONAL OVERDOSE [None]
  - STUPOR [None]
